FAERS Safety Report 8390422-9 (Version None)
Quarter: 2012Q2

REPORT INFORMATION
  Report Type: 
  Country: None (occurrence: None)
  Receive Date: 20120529
  Receipt Date: 20120521
  Transmission Date: 20120825
  Serious: Yes (Hospitalization)
  Sender: FDA-Public Use
  Company Number: GB-JNJFOC-20120200265

PATIENT

DRUGS (3)
  1. COMBIVIR [Concomitant]
     Indication: HIV INFECTION
     Route: 065
  2. DARUNAVIR HYDRATE [Suspect]
     Indication: HIV INFECTION
     Route: 048
  3. RITONAVIR [Concomitant]
     Indication: HIV INFECTION
     Route: 065

REACTIONS (3)
  - DYSPHAGIA [None]
  - WEIGHT DECREASED [None]
  - ORAL CANDIDIASIS [None]
